FAERS Safety Report 7216851-4 (Version None)
Quarter: 2011Q1

REPORT INFORMATION
  Report Type: 
  Country: None (occurrence: None)
  Receive Date: 20110104
  Receipt Date: 20110104
  Transmission Date: 20110831
  Serious: Yes (Life-Threatening, Hospitalization, Disabling)
  Sender: FDA-Public Use
  Company Number: None

PATIENT
  Age: 66 Year
  Sex: Male
  Weight: 103.8737 kg

DRUGS (1)
  1. ACTOS [Suspect]
     Indication: TYPE 2 DIABETES MELLITUS
     Dosage: 1 DAD PO
     Route: 048
     Dates: start: 20100927, end: 20101027

REACTIONS (3)
  - CARDIAC FAILURE [None]
  - BLOOD PRESSURE INCREASED [None]
  - DYSPNOEA [None]
